FAERS Safety Report 4488665-X (Version None)
Quarter: 2004Q4

REPORT INFORMATION
  Report Type: 
  Country: None (occurrence: None)
  Receive Date: 20041026
  Receipt Date: 20041013
  Transmission Date: 20050328
  Serious: Yes (Life-Threatening, Other)
  Sender: FDA-Public Use
  Company Number: USA041081002

PATIENT
  Age: 68 Year
  Sex: Male

DRUGS (1)
  1. XIGRIS [Suspect]
     Indication: SEPSIS
     Dates: start: 20041011, end: 20041013

REACTIONS (4)
  - CARDIAC TAMPONADE [None]
  - INTERNATIONAL NORMALISED RATIO INCREASED [None]
  - PERICARDIAL EFFUSION [None]
  - PLATELET COUNT INCREASED [None]
